FAERS Safety Report 14023122 (Version 2)
Quarter: 2018Q3

REPORT INFORMATION
  Report Type: Report from Study
  Country: US (occurrence: US)
  Receive Date: 20170928
  Receipt Date: 20180702
  Transmission Date: 20181010
  Serious: Yes (Other)
  Sender: FDA-Public Use
  Company Number: US-SA-2016SA198074

PATIENT
  Age: 45 Year
  Sex: Female
  Weight: 150 kg

DRUGS (15)
  1. OCREVUS [Suspect]
     Active Substance: OCRELIZUMAB
     Dosage: UNK, 1X
     Route: 041
     Dates: start: 20180130
  2. TERIFLUNOMIDE [Suspect]
     Active Substance: TERIFLUNOMIDE
     Dosage: 14 MG,QD
     Route: 048
     Dates: start: 20160623, end: 201710
  3. IBUPROFEN. [Concomitant]
     Active Substance: IBUPROFEN
     Dosage: 200 MG,UNK
     Route: 065
  4. TERIFLUNOMIDE [Suspect]
     Active Substance: TERIFLUNOMIDE
     Dosage: 14 MG,QD
     Route: 048
     Dates: start: 20171225, end: 20180101
  5. AMPYRA [Concomitant]
     Active Substance: DALFAMPRIDINE
     Indication: GOUT
     Dosage: 10 MG,BID
     Route: 048
  6. AMPYRA [Concomitant]
     Active Substance: DALFAMPRIDINE
     Dosage: 10 MG,BID
     Route: 065
     Dates: start: 20160216
  7. AMPYRA [Concomitant]
     Active Substance: DALFAMPRIDINE
     Dosage: 10 MG,QD
     Route: 065
  8. NUVIGIL [Concomitant]
     Active Substance: ARMODAFINIL
     Dosage: 50 MG,UNK
     Route: 065
  9. REBIF [Concomitant]
     Active Substance: INTERFERON BETA-1A
     Dosage: UNK UNK,UNK
     Route: 065
  10. TERIFLUNOMIDE [Suspect]
     Active Substance: TERIFLUNOMIDE
     Indication: MULTIPLE SCLEROSIS
     Dosage: 14 MG,QD
     Route: 048
     Dates: start: 20160623, end: 201710
  11. MODAFINIL. [Concomitant]
     Active Substance: MODAFINIL
     Indication: FATIGUE
     Dosage: UNK UNK,UNK
     Route: 065
  12. TERIFLUNOMIDE [Suspect]
     Active Substance: TERIFLUNOMIDE
     Dosage: 14 MG,QD
     Route: 048
     Dates: start: 20160623, end: 201710
  13. TERIFLUNOMIDE [Suspect]
     Active Substance: TERIFLUNOMIDE
     Dosage: 14 MG,QD
     Route: 048
     Dates: start: 2017, end: 20171221
  14. TECFIDERA [Suspect]
     Active Substance: DIMETHYL FUMARATE
     Dosage: UNK UNK,UNK
     Route: 065
     Dates: start: 201712, end: 201712
  15. OCREVUS [Suspect]
     Active Substance: OCRELIZUMAB
     Dosage: UNK UNK, 1X
     Route: 041
     Dates: start: 20180116

REACTIONS (27)
  - Pollakiuria [Recovered/Resolved]
  - Drug ineffective [Unknown]
  - Frequent bowel movements [Recovered/Resolved]
  - Gait disturbance [Unknown]
  - Rash [Unknown]
  - Impaired driving ability [Not Recovered/Not Resolved]
  - Multiple sclerosis [Not Recovered/Not Resolved]
  - Gastrointestinal disorder [Unknown]
  - Pruritus [Unknown]
  - Malaise [Not Recovered/Not Resolved]
  - Anal incontinence [Recovered/Resolved]
  - White blood cell count decreased [Unknown]
  - B-lymphocyte abnormalities [Not Recovered/Not Resolved]
  - Musculoskeletal pain [Not Recovered/Not Resolved]
  - Systemic mycosis [Unknown]
  - Diarrhoea [Recovered/Resolved]
  - Apathy [Recovered/Resolved]
  - Alopecia [Recovered/Resolved]
  - Feeling abnormal [Unknown]
  - Urinary incontinence [Recovered/Resolved]
  - Apathy [Unknown]
  - Fall [Unknown]
  - Condition aggravated [Recovered/Resolved]
  - Gait disturbance [Not Recovered/Not Resolved]
  - Condition aggravated [Unknown]
  - Fatigue [Recovered/Resolved]
  - Peroneal nerve palsy [Not Recovered/Not Resolved]

NARRATIVE: CASE EVENT DATE: 2016
